FAERS Safety Report 23625027 (Version 2)
Quarter: 2024Q2

REPORT INFORMATION
  Report Type: Spontaneous
  Country: US (occurrence: US)
  Receive Date: 20240313
  Receipt Date: 20240626
  Transmission Date: 20240716
  Serious: No
  Sender: FDA-Public Use
  Company Number: US-002147023-NVSC2024US053602

PATIENT
  Sex: Female

DRUGS (4)
  1. ZOMETA [Suspect]
     Active Substance: ZOLEDRONIC ACID
     Indication: Product used for unknown indication
     Dosage: UNK
     Route: 065
  2. GLIMEPIRIDE [Suspect]
     Active Substance: GLIMEPIRIDE
     Indication: Product used for unknown indication
     Dosage: 4 MG
     Route: 065
  3. GLIMEPIRIDE [Suspect]
     Active Substance: GLIMEPIRIDE
     Dosage: 2 MG
     Route: 065
  4. IBRANCE [Suspect]
     Active Substance: PALBOCICLIB
     Indication: Product used for unknown indication
     Dosage: UNK
     Route: 065

REACTIONS (9)
  - Ocular hyperaemia [Unknown]
  - Eye movement disorder [Unknown]
  - Vision blurred [Unknown]
  - Dry skin [Unknown]
  - Hand dermatitis [Unknown]
  - Skin fissures [Unknown]
  - Blood glucose decreased [Unknown]
  - Tumour marker decreased [Unknown]
  - Fatigue [Unknown]

NARRATIVE: CASE EVENT DATE: 20240621
